FAERS Safety Report 21002599 (Version 1)
Quarter: 2022Q2

REPORT INFORMATION
  Report Type: Spontaneous
  Country: US (occurrence: US)
  Receive Date: 20220624
  Receipt Date: 20220624
  Transmission Date: 20220721
  Serious: No
  Sender: FDA-Public Use
  Company Number: US-BioHaven Pharmaceuticals-2022BHV001311

PATIENT
  Age: 76 Year
  Weight: 63.560 kg

DRUGS (9)
  1. NURTEC ODT [Suspect]
     Active Substance: RIMEGEPANT SULFATE
     Indication: New daily persistent headache
     Dosage: (TAKEN 3 SO FAR) MONDAY (6TH), WEDNESDAY(4TH), AND FRIDAY (MAY 6TH 2022)
     Route: 065
     Dates: start: 20220506
  2. LISINOPRIL [Concomitant]
     Active Substance: LISINOPRIL
     Indication: Product used for unknown indication
     Route: 065
  3. AMLODIPINE [Concomitant]
     Active Substance: AMLODIPINE BESYLATE
     Indication: Product used for unknown indication
     Route: 065
  4. PANTOPRAZOLE [Concomitant]
     Active Substance: PANTOPRAZOLE
     Indication: Product used for unknown indication
     Route: 065
  5. FAMOTIDINE [Concomitant]
     Active Substance: FAMOTIDINE
     Indication: Product used for unknown indication
     Route: 065
  6. TRAZODONE [Concomitant]
     Active Substance: TRAZODONE HYDROCHLORIDE
     Indication: Product used for unknown indication
     Route: 065
  7. otc nature^s bounty hair-skin and nails with biotin and other vitamins [Concomitant]
     Indication: Product used for unknown indication
     Route: 065
  8. BIOTIN [Concomitant]
     Active Substance: BIOTIN
     Indication: Product used for unknown indication
     Route: 065
  9. RISPERIDONE [Concomitant]
     Active Substance: RISPERIDONE
     Indication: Tourette^s disorder
     Route: 065
     Dates: start: 2005, end: 202201

REACTIONS (2)
  - Off label use [Not Recovered/Not Resolved]
  - Drug ineffective [Not Recovered/Not Resolved]
